FAERS Safety Report 5704637-9 (Version None)
Quarter: 2008Q2

REPORT INFORMATION
  Report Type: 
  Country: None (occurrence: None)
  Receive Date: 20080409
  Receipt Date: 20080402
  Transmission Date: 20081010
  Serious: Yes (Hospitalization)
  Sender: FDA-Public Use
  Company Number: 163-C5013-07091190

PATIENT
  Age: 90 Year
  Sex: Female
  Weight: 63.5 kg

DRUGS (12)
  1. CC-5013 (LENALIDOMIDE) (25 MILLIGRAM, CAPSULES) [Suspect]
     Indication: B-CELL LYMPHOMA
     Dosage: 25 MG, QD DAYS 1-21 EVERY 28 DAYS, ORAL
     Route: 048
     Dates: start: 20070813, end: 20070921
  2. DEXAMETHASONE TAB [Suspect]
     Indication: B-CELL LYMPHOMA
     Dosage: 40 MG
     Dates: start: 20070910, end: 20070917
  3. LEVAQUIN [Concomitant]
  4. ATENOLOL [Concomitant]
  5. ASPIRIN [Concomitant]
  6. SYNTHROID [Concomitant]
  7. MULTIVITAMIN [Concomitant]
  8. PROTONIX [Concomitant]
  9. XANAX [Concomitant]
  10. MS CONTIN [Concomitant]
  11. REGLAN [Concomitant]
  12. ARANESP [Concomitant]

REACTIONS (17)
  - ANAEMIA [None]
  - ASTHENIA [None]
  - BLOOD ALBUMIN DECREASED [None]
  - BLOOD CALCIUM DECREASED [None]
  - BLOOD GLUCOSE INCREASED [None]
  - BODY TEMPERATURE INCREASED [None]
  - CONFUSIONAL STATE [None]
  - DEHYDRATION [None]
  - DISEASE PROGRESSION [None]
  - HYPONATRAEMIA [None]
  - LUNG DISORDER [None]
  - METASTASES TO LIVER [None]
  - MOBILITY DECREASED [None]
  - PROTEIN TOTAL DECREASED [None]
  - RETROPERITONEAL LYMPHADENOPATHY [None]
  - STAPHYLOCOCCAL INFECTION [None]
  - WOUND INFECTION [None]
